FAERS Safety Report 24331300 (Version 1)
Quarter: 2024Q3

REPORT INFORMATION
  Report Type: Report from Study
  Country: ZA (occurrence: None)
  Receive Date: 20240918
  Receipt Date: 20240918
  Transmission Date: 20241016
  Serious: Yes (Hospitalization, Other)
  Sender: ASTRAZENECA
  Company Number: 2024A211477

PATIENT
  Age: 77 Year
  Sex: Male

DRUGS (4)
  1. BUDESONIDE\FORMOTEROL FUMARATE DIHYDRATE [Suspect]
     Active Substance: BUDESONIDE\FORMOTEROL FUMARATE DIHYDRATE
     Indication: Asthma
     Dosage: 120.0UG/INHAL UNKNOWN
     Route: 055
  2. BUDESONIDE\FORMOTEROL [Concomitant]
     Active Substance: BUDESONIDE\FORMOTEROL
     Indication: Asthma
     Dosage: 120.0UG/INHAL UNKNOWN
     Route: 055
  3. LOSARTAN [Concomitant]
     Active Substance: LOSARTAN\LOSARTAN POTASSIUM
     Indication: Hypertension
     Dosage: 50.0MG UNKNOWN
     Route: 048
  4. ASPIRIN [Concomitant]
     Active Substance: ASPIRIN
     Indication: Thrombosis prophylaxis
     Dosage: 100.0MG UNKNOWN
     Route: 048

REACTIONS (3)
  - Coma [Unknown]
  - Cerebrovascular accident [Unknown]
  - Unresponsive to stimuli [Unknown]
